FAERS Safety Report 11122951 (Version 2)
Quarter: 2015Q4

REPORT INFORMATION
  Report Type: Report from Study
  Country: CA (occurrence: CA)
  Receive Date: 20150519
  Receipt Date: 20151215
  Transmission Date: 20160304
  Serious: Yes (Other)
  Sender: FDA-Public Use
  Company Number: CA-009507513-1505CAN006208

PATIENT
  Age: 45 Year
  Sex: Female

DRUGS (4)
  1. RIVOTRIL [Concomitant]
     Active Substance: CLONAZEPAM
     Indication: PRODUCT USED FOR UNKNOWN INDICATION
     Route: 065
  2. REMERON [Suspect]
     Active Substance: MIRTAZAPINE
     Indication: INSOMNIA
     Route: 065
  3. TASIGNA [Suspect]
     Active Substance: NILOTINIB
     Indication: CHRONIC MYELOID LEUKAEMIA
     Dosage: 400 MG, 2 EVERY 1 DAYS
     Route: 048
  4. CYMBALTA [Concomitant]
     Active Substance: DULOXETINE HYDROCHLORIDE
     Indication: PRODUCT USED FOR UNKNOWN INDICATION
     Route: 065

REACTIONS (17)
  - Swelling [Recovering/Resolving]
  - Palpitations [Recovering/Resolving]
  - Fatigue [Recovering/Resolving]
  - Hot flush [Recovering/Resolving]
  - Pruritus [Recovering/Resolving]
  - Insomnia [Recovering/Resolving]
  - Cardiac murmur [Recovering/Resolving]
  - Dyspnoea [Recovering/Resolving]
  - Nightmare [Recovering/Resolving]
  - Gastrointestinal disorder [Recovering/Resolving]
  - Ventricular extrasystoles [Recovering/Resolving]
  - Bronchitis [Recovering/Resolving]
  - Rash [Recovering/Resolving]
  - Myalgia [Recovering/Resolving]
  - Dyspepsia [Recovering/Resolving]
  - Acne [Recovering/Resolving]
  - Arthralgia [Recovering/Resolving]
